FAERS Safety Report 25144138 (Version 1)
Quarter: 2025Q2

REPORT INFORMATION
  Report Type: Spontaneous
  Country: PT (occurrence: PT)
  Receive Date: 20250401
  Receipt Date: 20250401
  Transmission Date: 20250717
  Serious: Yes (Other)
  Sender: GILEAD
  Company Number: PT-GILEAD-2025-0707917

PATIENT
  Age: 73 Year
  Sex: Male

DRUGS (3)
  1. VIREAD [Suspect]
     Active Substance: TENOFOVIR DISOPROXIL FUMARATE
     Indication: HIV infection
     Route: 065
  2. LOPINAVIR\RITONAVIR [Concomitant]
     Active Substance: LOPINAVIR\RITONAVIR
  3. RALTEGRAVIR [Concomitant]
     Active Substance: RALTEGRAVIR

REACTIONS (2)
  - Eyelid ptosis [Unknown]
  - Extraocular muscle disorder [Unknown]
